FAERS Safety Report 9504239 (Version 1)
Quarter: 2013Q3

REPORT INFORMATION
  Report Type: Spontaneous
  Country: US (occurrence: None)
  Receive Date: 20130905
  Receipt Date: 20130905
  Transmission Date: 20140515
  Serious: Yes (Life-Threatening, Hospitalization)
  Sender: FDA-Public Use
  Company Number: None

PATIENT
  Age: 22 Day
  Sex: Male
  Weight: 108.86 kg

DRUGS (1)
  1. CLOZAPINE [Suspect]
     Dosage: 1-100 MG AND 3 25 MG TABS QHS/BEDTIME ORAL
     Route: 048
     Dates: start: 20120526, end: 20130906

REACTIONS (4)
  - Rash [None]
  - Dyspnoea [None]
  - Pyrexia [None]
  - Ejection fraction decreased [None]
